FAERS Safety Report 7273482-8 (Version None)
Quarter: 2011Q1

REPORT INFORMATION
  Report Type: 
  Country: None (occurrence: None)
  Receive Date: 20110128
  Receipt Date: 20110113
  Transmission Date: 20110831
  Serious: No
  Sender: FDA-Public Use
  Company Number: 008330

PATIENT
  Age: 47 Year
  Sex: Female
  Weight: 89 kg

DRUGS (11)
  1. METOPROLOL SUCCINATE [Concomitant]
  2. SPIRONOLACTONE [Concomitant]
  3. IBUPROFEN [Concomitant]
  4. ENALAPRIL MALEATE [Concomitant]
  5. NIFEDIPINE [Concomitant]
  6. PLETAL [Suspect]
     Indication: PERIPHERAL ARTERIAL OCCLUSIVE DISEASE
     Dosage: 100 MG, BID , ORAL
     Route: 048
     Dates: start: 20090922, end: 20091210
  7. MOXONIDINE (MOXONIDINE) [Concomitant]
  8. AMLODIPINE [Concomitant]
  9. ASPIRIN [Concomitant]
  10. SIMVASTATIN [Concomitant]
  11. HYDROCHLOROTHIAZIDE [Concomitant]

REACTIONS (6)
  - ASPARTATE AMINOTRANSFERASE INCREASED [None]
  - BLOOD TRIGLYCERIDES INCREASED [None]
  - LIPIDS INCREASED [None]
  - BLOOD CHOLESTEROL INCREASED [None]
  - GAMMA-GLUTAMYLTRANSFERASE INCREASED [None]
  - ALANINE AMINOTRANSFERASE INCREASED [None]
